FAERS Safety Report 17195606 (Version 1)
Quarter: 2020Q1

REPORT INFORMATION
  Report Type: Spontaneous
  Country: US (occurrence: US)
  Receive Date: 20191223
  Receipt Date: 20191223
  Transmission Date: 20200409
  Serious: Yes (Other)
  Sender: FDA-Public Use
  Company Number: None

PATIENT
  Age: 74 Year
  Sex: Female
  Weight: 83.25 kg

DRUGS (17)
  1. HYDROCODONE-APAP [Concomitant]
     Active Substance: ACETAMINOPHEN\HYDROCODONE
  2. GABAPENTIN. [Concomitant]
     Active Substance: GABAPENTIN
  3. FLUZONE QUAD [Concomitant]
  4. CORTEF [Concomitant]
     Active Substance: HYDROCORTISONE
  5. ALPRAZOLAM. [Concomitant]
     Active Substance: ALPRAZOLAM
  6. COLACE [Concomitant]
     Active Substance: DOCUSATE SODIUM
  7. NOVOLOG [Concomitant]
     Active Substance: INSULIN ASPART
  8. LANTUS SOLOSTAR [Concomitant]
     Active Substance: INSULIN GLARGINE
  9. CAPECITABINE. [Suspect]
     Active Substance: CAPECITABINE
     Indication: BONE CANCER
     Route: 048
     Dates: start: 20190716
  10. CARVEDILOL. [Concomitant]
     Active Substance: CARVEDILOL
  11. CLONIDINE. [Concomitant]
     Active Substance: CLONIDINE
  12. LASIX [Concomitant]
     Active Substance: FUROSEMIDE
  13. KETOCONAZOLE. [Concomitant]
     Active Substance: KETOCONAZOLE
  14. TEMOZOLOMIDE. [Suspect]
     Active Substance: TEMOZOLOMIDE
     Indication: BONE CANCER
     Route: 048
     Dates: start: 20190716
  15. HYDRALAZINE [Concomitant]
     Active Substance: HYDRALAZINE HYDROCHLORIDE
  16. NORVASC [Concomitant]
     Active Substance: AMLODIPINE BESYLATE
  17. METOPIRONE [Concomitant]
     Active Substance: METYRAPONE

REACTIONS (1)
  - Diarrhoea [None]

NARRATIVE: CASE EVENT DATE: 20190801
